FAERS Safety Report 15834001 (Version 4)
Quarter: 2019Q2

REPORT INFORMATION
  Report Type: Spontaneous
  Country: US (occurrence: US)
  Receive Date: 20190116
  Receipt Date: 20190624
  Transmission Date: 20190711
  Serious: Yes (Other)
  Sender: FDA-Public Use
  Company Number: US-BAYER-2019-006844

PATIENT
  Age: 29 Year
  Sex: Female
  Weight: 124 kg

DRUGS (3)
  1. CYCLOBENZAPRIN [Concomitant]
     Active Substance: CYCLOBENZAPRINE
     Dosage: 5 MG, TID
     Route: 048
  2. KYLEENA [Suspect]
     Active Substance: LEVONORGESTREL
     Indication: CONTRACEPTION
     Dosage: 17.5 MCG/24HR, CONT
     Route: 015
     Dates: start: 20181011
  3. KYLEENA [Suspect]
     Active Substance: LEVONORGESTREL
     Indication: CONTRACEPTION
     Dosage: 17.5 MCG/24HR, CONT
     Route: 015
     Dates: start: 20180507, end: 20180918

REACTIONS (12)
  - Ovarian cyst [None]
  - Medical device discomfort [None]
  - Procedural pain [None]
  - Back pain [None]
  - Procedural pain [None]
  - Libido decreased [None]
  - Genital haemorrhage [None]
  - Device dislocation [None]
  - Depressed mood [None]
  - Embedded device [Recovered/Resolved]
  - Genital haemorrhage [None]
  - Fatigue [None]

NARRATIVE: CASE EVENT DATE: 20180507
